FAERS Safety Report 23888402 (Version 1)
Quarter: 2024Q2

REPORT INFORMATION
  Report Type: Spontaneous
  Country: US (occurrence: US)
  Receive Date: 20240523
  Receipt Date: 20240523
  Transmission Date: 20240716
  Serious: Yes (Other)
  Sender: FDA-Public Use
  Company Number: US-BAYER-2024A070788

PATIENT
  Age: 39 Year
  Sex: Female

DRUGS (2)
  1. ADEMPAS [Suspect]
     Active Substance: RIOCIGUAT
     Dosage: 2.5 MG, TID
     Route: 048
     Dates: start: 20210209
  2. REMODULIN [Concomitant]
     Active Substance: TREPROSTINIL
     Dosage: UNK
     Route: 042

REACTIONS (5)
  - Abdominal discomfort [None]
  - Musculoskeletal discomfort [None]
  - Medical device site discharge [None]
  - Disease progression [None]
  - Blood pressure decreased [None]

NARRATIVE: CASE EVENT DATE: 20240505
